FAERS Safety Report 9950549 (Version 1)
Quarter: 2014Q1

REPORT INFORMATION
  Report Type: Report from Study
  Country: US (occurrence: US)
  Receive Date: 20140304
  Receipt Date: 20140304
  Transmission Date: 20141002
  Serious: No
  Sender: FDA-Public Use
  Company Number: US-ABBVIE-13P-163-1072127-00

PATIENT
  Age: 64 Year
  Sex: Female

DRUGS (8)
  1. HUMIRA [Suspect]
     Indication: COLITIS ULCERATIVE
     Route: 058
     Dates: start: 20130208
  2. PREDNISONE [Concomitant]
     Indication: COLITIS ULCERATIVE
     Dosage: 10 MG DAILY
  3. BUPROPION [Concomitant]
     Indication: DEPRESSION
  4. NEXIUM [Concomitant]
     Indication: GASTROOESOPHAGEAL REFLUX DISEASE
     Dosage: 20 MG DAILY
  5. HYDROCHLOROTHIAZIDE [Concomitant]
     Indication: RENAL DISORDER
     Dosage: 25 MG DAILY
  6. HYDROCHLOROTHIAZIDE [Concomitant]
     Indication: RENAL LITHIASIS PROPHYLAXIS
  7. ESTRIOFF [Concomitant]
     Indication: OESTROGEN REPLACEMENT THERAPY
  8. HYOMYCINE [Concomitant]
     Indication: GASTROINTESTINAL DISORDER

REACTIONS (1)
  - Injection site pain [Recovered/Resolved]
